FAERS Safety Report 7717555-1 (Version None)
Quarter: 2011Q3

REPORT INFORMATION
  Report Type: 
  Country: None (occurrence: None)
  Receive Date: 20110823
  Receipt Date: 20070523
  Transmission Date: 20111222
  Serious: Yes (Other)
  Sender: FDA-Public Use
  Company Number: 2007043402

PATIENT
  Age: 56 Year
  Sex: Female
  Weight: 67.5 kg

DRUGS (3)
  1. FAMCICLOVIR [Suspect]
     Dosage: 500 MG (250 MG, 2 IN 1 D)
     Dates: start: 20070521
  2. ATGAM [Suspect]
     Indication: APLASTIC ANAEMIA
     Dosage: 200 MG, INTRAVENOUS
     Route: 042
     Dates: start: 20070521, end: 20070521
  3. CYCLOSPORINE [Suspect]
     Dosage: 800 MG (400 MG, 2 IN 1 D)
     Dates: start: 20070521

REACTIONS (5)
  - BLOOD BILIRUBIN INCREASED [None]
  - ALANINE AMINOTRANSFERASE INCREASED [None]
  - THROAT IRRITATION [None]
  - GASTROINTESTINAL PAIN [None]
  - ASPARTATE AMINOTRANSFERASE INCREASED [None]
